FAERS Safety Report 7791902-7 (Version None)
Quarter: 2011Q3

REPORT INFORMATION
  Report Type: 
  Country: None (occurrence: None)
  Receive Date: 20110930
  Receipt Date: 20110930
  Transmission Date: 20111222
  Serious: Yes (Hospitalization)
  Sender: FDA-Public Use
  Company Number: None

PATIENT
  Age: 51 Year
  Sex: Male
  Weight: 91.4 kg

DRUGS (1)
  1. METHOTREXATE [Suspect]
     Dosage: 2.5 MG EVERY DAY PO
     Route: 048
     Dates: start: 20110808, end: 20110907

REACTIONS (5)
  - OROPHARYNGEAL PAIN [None]
  - SKIN ULCER [None]
  - MOUTH ULCERATION [None]
  - RENAL FAILURE [None]
  - RASH [None]
